FAERS Safety Report 13438532 (Version 3)
Quarter: 2017Q2

REPORT INFORMATION
  Report Type: Spontaneous
  Country: US (occurrence: US)
  Receive Date: 20170413
  Receipt Date: 20170525
  Transmission Date: 20170830
  Serious: No
  Sender: FDA-Public Use
  Company Number: US-PFIZER INC-2873137

PATIENT
  Sex: Female

DRUGS (2)
  1. EPINEPHRINE/LIDOCAINE HYDROCHLORIDE [Suspect]
     Active Substance: EPINEPHRINE\LIDOCAINE HYDROCHLORIDE
     Indication: ANAESTHESIA PROCEDURE
     Dosage: 2 ML, UNK
     Route: 059
     Dates: start: 20150501
  2. IODINE /00080001/ [Concomitant]
     Indication: INFECTION PROPHYLAXIS
     Route: 061

REACTIONS (3)
  - Drug ineffective [Recovered/Resolved]
  - Incision site haemorrhage [Recovered/Resolved]
  - Product quality issue [Recovered/Resolved]

NARRATIVE: CASE EVENT DATE: 20150501
